FAERS Safety Report 7346934-X (Version None)
Quarter: 2011Q1

REPORT INFORMATION
  Report Type: 
  Country: None (occurrence: None)
  Receive Date: 20110311
  Receipt Date: 20110302
  Transmission Date: 20110831
  Serious: Yes (Hospitalization)
  Sender: FDA-Public Use
  Company Number: US-SANOFI-AVENTIS-2011SA013932

PATIENT
  Age: 81 Year
  Sex: Male

DRUGS (4)
  1. OPTICLICK [Suspect]
     Indication: TYPE 2 DIABETES MELLITUS
     Dates: start: 20100101
  2. INSULIN GLARGINE [Suspect]
     Indication: TYPE 2 DIABETES MELLITUS
     Dosage: 15 UNIT IN AM AND 15 UNITS IN PM
     Route: 058
     Dates: start: 20100101
  3. INSULIN GLARGINE [Suspect]
     Dosage: DOSE:18 UNIT(S)
     Route: 058
  4. ALL OTHER THERAPEUTIC PRODUCTS [Concomitant]

REACTIONS (5)
  - FALL [None]
  - HEAD INJURY [None]
  - LIGAMENT RUPTURE [None]
  - INJECTION SITE PAIN [None]
  - JOINT INJURY [None]
